FAERS Safety Report 5265193-5 (Version None)
Quarter: 2007Q1

REPORT INFORMATION
  Report Type: 
  Country: None (occurrence: None)
  Receive Date: 20061213
  Receipt Date: 20040413
  Transmission Date: 20070707
  Serious: No
  Sender: FDA-Public Use
  Company Number: 2004UW07464

PATIENT
  Age: 85 Year
  Sex: Female
  Weight: 53.5244 kg

DRUGS (1)
  1. NOLVADEX [Suspect]
     Indication: BREAST CANCER
     Dates: start: 19890101, end: 19950101

REACTIONS (1)
  - DISEASE RECURRENCE [None]
